FAERS Safety Report 5249742-9 (Version None)
Quarter: 2007Q1

REPORT INFORMATION
  Report Type: 
  Country: None (occurrence: None)
  Receive Date: 20070228
  Receipt Date: 20061017
  Transmission Date: 20070707
  Serious: No
  Sender: FDA-Public Use
  Company Number: US-GLAXOSMITHKLINE-A0623912A

PATIENT
  Sex: Male

DRUGS (6)
  1. IMITREX [Suspect]
     Indication: MIGRAINE
     Dosage: 1INJ AS REQUIRED
     Route: 058
     Dates: start: 20010101
  2. PERCOCET [Concomitant]
  3. LEVOXYL [Concomitant]
  4. POTASSIUM ACETATE [Concomitant]
  5. PROTONIX [Concomitant]
  6. LABETALOL HCL [Concomitant]

REACTIONS (1)
  - CHEST DISCOMFORT [None]
